FAERS Safety Report 9348743 (Version 3)
Quarter: 2013Q3

REPORT INFORMATION
  Report Type: Report from Study
  Country: GB (occurrence: GB)
  Receive Date: 20130614
  Receipt Date: 20130730
  Transmission Date: 20140515
  Serious: Yes (Hospitalization)
  Sender: FDA-Public Use
  Company Number: GB-PFIZER INC-2013172326

PATIENT
  Age: 52 Year
  Sex: Female
  Weight: 91 kg

DRUGS (1)
  1. AXITINIB [Suspect]
     Dosage: 3 MG (UNIT DOSE), CYCLIC
     Dates: start: 20120124

REACTIONS (1)
  - Anorectal infection [Recovered/Resolved]
